FAERS Safety Report 24035700 (Version 6)
Quarter: 2024Q3

REPORT INFORMATION
  Report Type: Report from Study
  Country: CA (occurrence: CA)
  Receive Date: 20240701
  Receipt Date: 20240918
  Transmission Date: 20241017
  Serious: Yes (Hospitalization, Other)
  Sender: GLAXOSMITHKLINE
  Company Number: CA-GLAXOSMITHKLINE-CA2024078609

PATIENT

DRUGS (1)
  1. BELIMUMAB [Suspect]
     Active Substance: BELIMUMAB
     Indication: Product used for unknown indication
     Dosage: 200 MG, WE
     Route: 058
     Dates: start: 20221222

REACTIONS (9)
  - Rib fracture [Recovered/Resolved]
  - Salmonellosis [Not Recovered/Not Resolved]
  - Meningitis [Not Recovered/Not Resolved]
  - Gait inability [Not Recovered/Not Resolved]
  - Dysstasia [Not Recovered/Not Resolved]
  - Localised infection [Not Recovered/Not Resolved]
  - Cyst [Not Recovered/Not Resolved]
  - Subcutaneous abscess [Not Recovered/Not Resolved]
  - Fall [Recovered/Resolved]
